FAERS Safety Report 6541019-4 (Version None)
Quarter: 2010Q1

REPORT INFORMATION
  Report Type: 
  Country: None (occurrence: None)
  Receive Date: 20100118
  Receipt Date: 20100113
  Transmission Date: 20100710
  Serious: Yes (Other)
  Sender: FDA-Public Use
  Company Number: US-BRISTOL-MYERS SQUIBB COMPANY-14522155

PATIENT
  Age: 38 Year
  Sex: Female
  Weight: 65 kg

DRUGS (4)
  1. REYATAZ [Suspect]
     Indication: HIV TEST POSITIVE
     Dosage: ALSO RECEIVED 400MG;FROM 24-MAR-2009,300 MG ATAZANAVIR SULFATE.
     Route: 048
     Dates: start: 20081028, end: 20090324
  2. EPZICOM [Suspect]
     Indication: HIV INFECTION
     Dosage: 1DF=300MG/200MG.
     Route: 048
     Dates: start: 20081028
  3. NORVIR [Suspect]
     Indication: HIV INFECTION
     Route: 048
     Dates: start: 20090324
  4. COMBIVIR [Suspect]

REACTIONS (3)
  - NORMAL NEWBORN [None]
  - PREGNANCY [None]
  - VIRAL LOAD INCREASED [None]
